FAERS Safety Report 8239871-X (Version None)
Quarter: 2012Q1

REPORT INFORMATION
  Report Type: 
  Country: None (occurrence: None)
  Receive Date: 20120328
  Receipt Date: 20120320
  Transmission Date: 20120608
  Serious: Yes (Hospitalization, Other)
  Sender: FDA-Public Use
  Company Number: PHEH2011US08531

PATIENT
  Sex: Female
  Weight: 103 kg

DRUGS (15)
  1. PRAVACHOL [Concomitant]
     Dosage: UNK UKN, UNK
  2. AXID [Concomitant]
     Indication: GASTROOESOPHAGEAL REFLUX DISEASE
     Dosage: UNK UKN, UNK
  3. BIOTIN [Concomitant]
     Dosage: UNK UKN, UNK
     Dates: start: 20110724
  4. AREDIA [Suspect]
     Indication: METASTASES TO BONE
  5. NASONEX [Concomitant]
     Dosage: UNK UKN, UNK
  6. COZAAR [Concomitant]
     Dosage: 25 MG, TID
  7. ASPIRIN [Concomitant]
     Dosage: UNK UKN, UNK
  8. HYDROCHLOROTHIAZIDE [Concomitant]
     Dosage: 25 MG,
  9. AREDIA [Suspect]
     Indication: OSTEOPOROSIS
     Dosage: 30 MG
     Dates: end: 20111102
  10. DOXYCYCLINE [Concomitant]
     Dosage: UNK UKN, UNK
  11. FLUORMETHOLONE [Concomitant]
     Dosage: UNK UKN, UNK
  12. RESTASIS [Concomitant]
     Dosage: 0.05 %, BID
  13. CALCIUM CARBONATE [Concomitant]
     Indication: OSTEOPOROSIS
     Dosage: 600 / 400 MG, BID
     Dates: start: 20111102
  14. TRANXENE [Concomitant]
     Indication: ANXIETY
     Dosage: 7.5 MG, TID
     Dates: start: 20050901
  15. AMBIEN [Concomitant]
     Dosage: UNK UKN, UNK
     Route: 048

REACTIONS (7)
  - ANAEMIA [None]
  - SENSORY LOSS [None]
  - GAIT DISTURBANCE [None]
  - HYPOKALAEMIA [None]
  - CEREBROVASCULAR ACCIDENT [None]
  - FALL [None]
  - APHASIA [None]
